FAERS Safety Report 25503812 (Version 1)
Quarter: 2025Q3

REPORT INFORMATION
  Report Type: Spontaneous
  Country: EU (occurrence: EU)
  Receive Date: 20250702
  Receipt Date: 20250702
  Transmission Date: 20251020
  Serious: Yes (Life-Threatening, Hospitalization, Other)
  Sender: SANDOZ
  Company Number: EU-GILEAD-2019-0383527

PATIENT
  Age: 27 Year
  Sex: Female
  Weight: 69 kg

DRUGS (7)
  1. AXICABTAGENE CILOLEUCEL [Suspect]
     Active Substance: AXICABTAGENE CILOLEUCEL
     Indication: Primary mediastinal large B-cell lymphoma
     Route: 042
     Dates: start: 20181226, end: 20181226
  2. CYCLOPHOSPHAMIDE [Suspect]
     Active Substance: CYCLOPHOSPHAMIDE
     Indication: Bone marrow conditioning regimen
     Route: 042
     Dates: start: 20181221, end: 20181223
  3. FLUDARABINE [Suspect]
     Active Substance: FLUDARABINE PHOSPHATE
     Indication: Bone marrow conditioning regimen
     Route: 042
     Dates: start: 20181221, end: 20181223
  4. DIPHENHYDRAMINE [Concomitant]
     Active Substance: DIPHENHYDRAMINE
     Indication: Product used for unknown indication
     Route: 065
  5. LEVETIRACETAM [Concomitant]
     Active Substance: LEVETIRACETAM
     Indication: Product used for unknown indication
     Route: 065
  6. ACETAMINOPHEN [Concomitant]
     Active Substance: ACETAMINOPHEN
     Indication: Product used for unknown indication
     Route: 065
  7. VINORELBINE [Concomitant]
     Active Substance: VINORELBINE TARTRATE
     Indication: Chemotherapy
     Route: 065

REACTIONS (16)
  - Disease progression [Not Recovered/Not Resolved]
  - Pleural effusion [Recovered/Resolved]
  - Coronavirus infection [Recovered/Resolved]
  - Primary mediastinal large B-cell lymphoma [Recovered/Resolved]
  - Primary mediastinal large B-cell lymphoma [Unknown]
  - Neurotoxicity [Recovered/Resolved]
  - Neurotoxicity [Unknown]
  - Primary mediastinal large B-cell lymphoma recurrent [Not Recovered/Not Resolved]
  - Febrile neutropenia [Unknown]
  - Pleural effusion [Unknown]
  - Cytokine release syndrome [Recovered/Resolved]
  - Neutropenia [Unknown]
  - Pyrexia [Recovered/Resolved]
  - Drug ineffective [Not Recovered/Not Resolved]
  - Lymphopenia [Recovered/Resolved]
  - Lymphopenia [Not Recovered/Not Resolved]

NARRATIVE: CASE EVENT DATE: 20181226
